FAERS Safety Report 4599676-8 (Version None)
Quarter: 2005Q1

REPORT INFORMATION
  Report Type: 
  Country: None (occurrence: None)
  Receive Date: 20050303
  Receipt Date: 20050210
  Transmission Date: 20050727
  Serious: Yes (Other)
  Sender: FDA-Public Use
  Company Number: USA050188754

PATIENT
  Age: 53 Year
  Sex: Female

DRUGS (5)
  1. EVISTA [Suspect]
     Indication: OSTEOPOROSIS
     Dosage: 60 MG/1 DAY
     Dates: start: 20040101
  2. FORTEO [Suspect]
     Indication: OSTEOPOROSIS
     Dosage: 20 UG/1 DAY
     Dates: start: 20041001
  3. FLEXERIL [Concomitant]
  4. DEPO-PROVERA SUSPENSION/INJ [Concomitant]
  5. VICODIN [Concomitant]

REACTIONS (10)
  - ARTHRITIS [None]
  - BACK PAIN [None]
  - FRACTURED SACRUM [None]
  - HIP FRACTURE [None]
  - MULTIPLE FRACTURES [None]
  - PAIN [None]
  - PATHOLOGICAL FRACTURE [None]
  - PHARMACEUTICAL PRODUCT COMPLAINT [None]
  - SPINAL FRACTURE [None]
  - TREMOR [None]
